FAERS Safety Report 24698849 (Version 1)
Quarter: 2024Q4

REPORT INFORMATION
  Report Type: Spontaneous
  Country: FR (occurrence: FR)
  Receive Date: 20241205
  Receipt Date: 20241205
  Transmission Date: 20250115
  Serious: Yes (Death)
  Sender: STRIDES
  Company Number: FR-STRIDES ARCOLAB LIMITED-2024SP015985

PATIENT
  Age: 9 Decade
  Sex: Male

DRUGS (12)
  1. PREDNISOLONE [Suspect]
     Active Substance: PREDNISOLONE
     Indication: Mantle cell lymphoma
     Dosage: 20 MILLIGRAM, (PEP-C)
     Route: 048
  2. METHOTREXATE [Suspect]
     Active Substance: METHOTREXATE
     Indication: Mantle cell lymphoma
     Dosage: 2 GRAM PER SQUARE METRE
     Route: 037
  3. ETOPOSIDE [Suspect]
     Active Substance: ETOPOSIDE
     Indication: Mantle cell lymphoma
     Dosage: 50 MILLIGRAM, (PEP-C)
     Route: 048
  4. CYTARABINE [Suspect]
     Active Substance: CYTARABINE
     Indication: Mantle cell lymphoma
     Dosage: 3000 MILLIGRAM/SQ. METER, BID (ON DAYS?2-3, IN 21?DAY CYCLES)
     Route: 065
  5. RITUXIMAB [Suspect]
     Active Substance: RITUXIMAB
     Indication: Mantle cell lymphoma
     Dosage: 500 MILLIGRAM, CYCLICAL (ON DAY 1, IN 21?DAY CYCLE)
     Route: 065
  6. RITUXIMAB [Suspect]
     Active Substance: RITUXIMAB
     Dosage: 375 MILLIGRAM/SQ. METER (FIRST COURSE)
     Route: 065
  7. RITUXIMAB [Suspect]
     Active Substance: RITUXIMAB
     Dosage: 500 MILLIGRAM/SQ. METER (SUBSEQUENT COURSES)
     Route: 065
  8. PROCARBAZINE [Suspect]
     Active Substance: PROCARBAZINE
     Indication: Mantle cell lymphoma
     Dosage: 50 MILLIGRAM, (PEP-C)
     Route: 048
  9. CYCLOPHOSPHAMIDE [Suspect]
     Active Substance: CYCLOPHOSPHAMIDE
     Indication: Mantle cell lymphoma
     Dosage: 50 MILLIGRAM, (PEP-C)
     Route: 048
  10. IBRUTINIB [Suspect]
     Active Substance: IBRUTINIB
     Indication: Mantle cell lymphoma
     Dosage: 560 MILLIGRAM, QD
     Route: 048
  11. DEXAMETHASONE [Suspect]
     Active Substance: DEXAMETHASONE
     Indication: Mantle cell lymphoma
     Dosage: 40 MILLIGRAM, CYCLICAL (ON DAYS 1-4, IN 21?DAY CYCLE)
     Route: 065
  12. BENDAMUSTINE [Suspect]
     Active Substance: BENDAMUSTINE
     Indication: Mantle cell lymphoma
     Dosage: 70 MILLIGRAM/SQ. METER, CYCLICAL (ON DAYS 1 AND 2 OF EACH 28?DAY CYCLE, FOR UP TO SIX CYCLES)
     Route: 065

REACTIONS (3)
  - Mantle cell lymphoma recurrent [Fatal]
  - Drug ineffective [Fatal]
  - Off label use [Unknown]
